FAERS Safety Report 7070625-6 (Version None)
Quarter: 2010Q4

REPORT INFORMATION
  Report Type: 
  Country: None (occurrence: None)
  Receive Date: 20101029
  Receipt Date: 20101025
  Transmission Date: 20110411
  Serious: Yes (Other)
  Sender: FDA-Public Use
  Company Number: US-PFIZER INC-2010135677

PATIENT
  Sex: Female
  Weight: 95.2 kg

DRUGS (1)
  1. LIPITOR [Suspect]
     Indication: BLOOD CHOLESTEROL INCREASED
     Dosage: 10 MG, UNK
     Route: 048
     Dates: start: 20020101, end: 20020101

REACTIONS (6)
  - CLUBBING [None]
  - DERMATOMYOSITIS [None]
  - PHOTOSENSITIVITY REACTION [None]
  - PULMONARY FIBROSIS [None]
  - RASH [None]
  - SKIN FISSURES [None]
